FAERS Safety Report 5688763-9 (Version None)
Quarter: 2008Q1

REPORT INFORMATION
  Report Type: 
  Country: None (occurrence: None)
  Receive Date: 20080331
  Receipt Date: 20080327
  Transmission Date: 20080703
  Serious: Yes (Death, Hospitalization)
  Sender: FDA-Public Use
  Company Number: FR-ASTRAZENECA-2008CG00471

PATIENT
  Age: 716 Month
  Sex: Male

DRUGS (12)
  1. NEXIUM [Suspect]
     Route: 048
     Dates: start: 20071122, end: 20071210
  2. VANCOMYCIN [Suspect]
     Indication: OSTEITIS
     Route: 042
     Dates: start: 20071207, end: 20071210
  3. LOVENOX [Suspect]
     Route: 058
     Dates: start: 20071122, end: 20071210
  4. OSTRAM VIT D3 [Suspect]
     Route: 048
     Dates: start: 20071122, end: 20071211
  5. OLICLINOMEL [Suspect]
     Route: 042
     Dates: end: 20071209
  6. POLARAMINE [Suspect]
     Route: 047
     Dates: end: 20071210
  7. TRIFLUCAN [Suspect]
     Route: 048
     Dates: end: 20071210
  8. LIORESAL [Suspect]
     Route: 048
     Dates: end: 20071210
  9. LASILIX [Suspect]
     Route: 048
     Dates: end: 20071210
  10. SERESTA [Suspect]
     Route: 048
     Dates: end: 20071206
  11. DUPHALAC [Concomitant]
     Route: 048
     Dates: start: 20071122
  12. PERFALGAN [Concomitant]
     Route: 042
     Dates: start: 20071123

REACTIONS (5)
  - LEUKOPENIA [None]
  - LYMPHOPENIA [None]
  - NEUTROPENIA [None]
  - NORMOCHROMIC NORMOCYTIC ANAEMIA [None]
  - THROMBOCYTOPENIA [None]
